FAERS Safety Report 19890309 (Version 1)
Quarter: 2021Q3

REPORT INFORMATION
  Report Type: Spontaneous
  Country: IN (occurrence: IN)
  Receive Date: 20210927
  Receipt Date: 20210927
  Transmission Date: 20211014
  Serious: Yes (Hospitalization)
  Sender: FDA-Public Use
  Company Number: IN-PFIZER INC-202101134727

PATIENT
  Age: 83 Year
  Sex: Male

DRUGS (1)
  1. CRIZALK [Suspect]
     Active Substance: CRIZOTINIB
     Indication: LUNG ADENOCARCINOMA
     Dosage: 250 MG, 2X/DAY
     Route: 048

REACTIONS (4)
  - Abdominal pain [Unknown]
  - Neoplasm progression [Unknown]
  - Decreased appetite [Unknown]
  - Abdominal distension [Unknown]
